FAERS Safety Report 8817639 (Version 1)
Quarter: 2012Q4

REPORT INFORMATION
  Report Type: 
  Country: US (occurrence: US)
  Receive Date: 20121001
  Receipt Date: 20121001
  Transmission Date: 20130627
  Serious: No
  Sender: FDA-Public Use
  Company Number: US-009507513-1209USA010759

PATIENT
  Sex: Female

DRUGS (2)
  1. PEG-INTRON [Suspect]
     Indication: HEPATITIS C
     Dosage: redipen
     Dates: start: 20120414, end: 20120922
  2. REBETOL [Suspect]
     Indication: HEPATITIS C
     Dosage: UNK
     Dates: start: 20120414, end: 20120922

REACTIONS (6)
  - Wheezing [Unknown]
  - Glossitis [Unknown]
  - Nasal obstruction [Unknown]
  - Influenza like illness [Unknown]
  - White blood cell count decreased [Unknown]
  - Alopecia [Unknown]
